FAERS Safety Report 11886538 (Version 1)
Quarter: 2016Q1

REPORT INFORMATION
  Report Type: Other
  Country: CO (occurrence: CO)
  Receive Date: 20160104
  Receipt Date: 20160104
  Transmission Date: 20160526
  Serious: Yes (Other)
  Sender: FDA-Public Use
  Company Number: CO-DEP_13300_2015

PATIENT
  Sex: Female

DRUGS (6)
  1. ALL OTHER THERAPEUTIC PRODUCTS [Concomitant]
     Active Substance: UNSPECIFIED INGREDIENT
     Dosage: DF
  2. ATORVASTATIN [Concomitant]
     Active Substance: ATORVASTATIN
     Dosage: DF
  3. PREGABALIN. [Concomitant]
     Active Substance: PREGABALIN
     Dosage: DF
  4. ALL OTHER THERAPEUTIC PRODUCTS [Concomitant]
     Active Substance: UNSPECIFIED INGREDIENT
     Dosage: DF
  5. PALEXIS (50 MG) (TAPENTADOL) [Suspect]
     Active Substance: TAPENTADOL
     Indication: PRODUCT USED FOR UNKNOWN INDICATION
     Dosage: UNK
  6. TYLENOL/00020001/ (PARACETAMOL) [Concomitant]
     Dosage: DF

REACTIONS (2)
  - Asphyxia [Unknown]
  - Tachycardia [Unknown]
